FAERS Safety Report 9725415 (Version 1)
Quarter: 2013Q4

REPORT INFORMATION
  Report Type: Spontaneous
  Country: US (occurrence: None)
  Receive Date: 20131129
  Receipt Date: 20131129
  Transmission Date: 20140711
  Serious: Yes (Other)
  Sender: FDA-Public Use
  Company Number: 2013P1021418

PATIENT
  Age: 19 Year
  Sex: Male

DRUGS (2)
  1. AMPHETAMINE SALTS ER 20MG [Suspect]
     Indication: INSOMNIA
     Dosage: 10 MG; QD; 1 WEEK
  2. FLUOXETINE [Concomitant]

REACTIONS (5)
  - Decreased appetite [None]
  - Insomnia [None]
  - Restlessness [None]
  - Gastrointestinal disorder [None]
  - Condition aggravated [None]
